FAERS Safety Report 7264569-4 (Version None)
Quarter: 2011Q1

REPORT INFORMATION
  Report Type: 
  Country: None (occurrence: None)
  Receive Date: 20110131
  Receipt Date: 20110126
  Transmission Date: 20110831
  Serious: Yes (Other)
  Sender: FDA-Public Use
  Company Number: US-PFIZER INC-2006043093

PATIENT
  Sex: Female
  Weight: 60.771 kg

DRUGS (5)
  1. LIPITOR [Suspect]
     Indication: BLOOD CHOLESTEROL INCREASED
     Dosage: UNK
  2. TOPROL-XL [Concomitant]
     Dosage: 50MG, UNK
     Route: 048
  3. HYZAAR [Concomitant]
     Dosage: 50/12.5 MG, UNK
     Route: 048
  4. METOPROLOL [Concomitant]
     Indication: RETINAL DISORDER
     Dosage: 50 MG, 1X/DAY
  5. FISH OIL [Concomitant]
     Dosage: 4000 UNITS, UNK
     Route: 048

REACTIONS (3)
  - VISUAL IMPAIRMENT [None]
  - URINARY TRACT INFECTION [None]
  - BLOOD CHOLESTEROL INCREASED [None]
